FAERS Safety Report 8097567-1 (Version None)
Quarter: 2012Q1

REPORT INFORMATION
  Report Type: 
  Country: None (occurrence: None)
  Receive Date: 20120128
  Receipt Date: 20110804
  Transmission Date: 20120608
  Serious: Yes (Other)
  Sender: FDA-Public Use
  Company Number: US-ABBOTT-09P-163-0594676-00

PATIENT
  Sex: Male
  Weight: 115.77 kg

DRUGS (4)
  1. ACLIVATE OINTMENT [Concomitant]
     Indication: PRODUCT USED FOR UNKNOWN INDICATION
  2. ULTIVATE OINTMENT [Concomitant]
     Indication: PRODUCT USED FOR UNKNOWN INDICATION
  3. HUMIRA [Suspect]
     Indication: PSORIASIS
     Dates: start: 20081001, end: 20100101
  4. NIACIN [Concomitant]
     Indication: PRODUCT USED FOR UNKNOWN INDICATION

REACTIONS (3)
  - PANCREATITIS [None]
  - DRUG EFFECT DECREASED [None]
  - PSORIASIS [None]
